FAERS Safety Report 21771301 (Version 1)
Quarter: 2022Q4

REPORT INFORMATION
  Report Type: Spontaneous
  Country: US (occurrence: None)
  Receive Date: 20221222
  Receipt Date: 20221222
  Transmission Date: 20230112
  Serious: No
  Sender: FDA-Public Use
  Company Number: None

PATIENT
  Sex: Male

DRUGS (2)
  1. VELETRI [Suspect]
     Active Substance: EPOPROSTENOL
     Dosage: OTHER STRENGTH : 30 NG/KG/MIN;? ?OTHER FREQUENCY : CONTINUOUS  INTRAVENOUS?
     Route: 042
     Dates: start: 20210917
  2. DEVICE [Suspect]
     Active Substance: DEVICE
     Indication: Pulmonary arterial hypertension
     Dosage: OTHER STRENGTH : 1.5MG/VL;?
     Dates: start: 20210917

REACTIONS (3)
  - Dyspnoea [None]
  - Recalled product administered [None]
  - Product quality issue [None]
